FAERS Safety Report 5240651-8 (Version None)
Quarter: 2007Q1

REPORT INFORMATION
  Report Type: 
  Country: None (occurrence: None)
  Receive Date: 20070219
  Receipt Date: 20070207
  Transmission Date: 20070707
  Serious: Yes (Hospitalization)
  Sender: FDA-Public Use
  Company Number: US-MERCK-0702USA02780

PATIENT
  Age: 87 Year
  Sex: Male

DRUGS (2)
  1. INDOCIN [Suspect]
     Route: 048
  2. VASOTEC [Concomitant]
     Route: 048

REACTIONS (5)
  - ANAEMIA MACROCYTIC [None]
  - ATRIOVENTRICULAR BLOCK FIRST DEGREE [None]
  - RENAL FAILURE [None]
  - SYNCOPE [None]
  - VOMITING [None]
